FAERS Safety Report 9915311 (Version 1)
Quarter: 2014Q1

REPORT INFORMATION
  Report Type: Spontaneous
  Country: US (occurrence: US)
  Receive Date: 20140221
  Receipt Date: 20140221
  Transmission Date: 20141002
  Serious: No
  Sender: FDA-Public Use
  Company Number: US-009507513-1402USA001726

PATIENT
  Sex: Female

DRUGS (4)
  1. NOXAFIL [Suspect]
     Indication: MENINGITIS
     Dosage: THREE 100MG TABLETS DAILY
     Route: 048
  2. SYNTHROID [Concomitant]
  3. DAYPRO [Concomitant]
  4. VITAMINS (UNSPECIFIED) [Concomitant]

REACTIONS (2)
  - Nausea [Unknown]
  - Off label use [Unknown]
